FAERS Safety Report 9768627 (Version 2)
Quarter: 2013Q4

REPORT INFORMATION
  Report Type: Report from Study
  Country: US (occurrence: US)
  Receive Date: 20131218
  Receipt Date: 20131218
  Transmission Date: 20140711
  Serious: Yes (Other)
  Sender: FDA-Public Use
  Company Number: US-AMGEN-USACT2013015199

PATIENT
  Age: 26 Year
  Sex: Female
  Weight: 68.93 kg

DRUGS (3)
  1. ROMIPLOSTIM [Suspect]
     Indication: IMMUNE THROMBOCYTOPENIC PURPURA
     Dosage: 0.5 UNK, QWK
     Route: 058
     Dates: start: 201004, end: 20130205
  2. PREDNISONE [Concomitant]
     Dosage: 60 MG, QD
     Dates: start: 20131018
  3. PRENATAL                           /01529801/ [Concomitant]
     Dosage: UNK
     Dates: start: 201303

REACTIONS (1)
  - Platelet count decreased [Unknown]
